FAERS Safety Report 9877124 (Version 3)
Quarter: 2014Q1

REPORT INFORMATION
  Report Type: Spontaneous
  Country: ES (occurrence: ES)
  Receive Date: 20140206
  Receipt Date: 20140328
  Transmission Date: 20141002
  Serious: Yes (Hospitalization)
  Sender: FDA-Public Use
  Company Number: ES-JNJFOC-20140119643

PATIENT
  Age: 74 Year
  Sex: Male
  Weight: 74 kg

DRUGS (6)
  1. REMICADE [Suspect]
     Indication: RHEUMATOID ARTHRITIS
     Route: 042
     Dates: start: 200912, end: 2013
  2. REMICADE [Suspect]
     Indication: RHEUMATOID ARTHRITIS
     Dosage: AT WEEK 52
     Route: 042
     Dates: start: 2003
  3. METHOTREXATE [Suspect]
     Indication: RHEUMATOID ARTHRITIS
     Dosage: (2.5 MG 4 TIMES A WEEK)
     Route: 065
     Dates: start: 2000, end: 2013
  4. DACORTIN [Suspect]
     Indication: RHEUMATOID ARTHRITIS
     Dosage: 2,5 MG 4 TIMES A WEEK
     Route: 065
     Dates: start: 1999
  5. ACFOL [Concomitant]
     Dosage: 2,5 MG 4 TIMES A WEEK
     Route: 065
  6. NAPROXEN [Concomitant]
     Dosage: 2,5 MG 4 TIMES A WEEK
     Route: 065

REACTIONS (8)
  - Lobar pneumonia [Unknown]
  - Pleurisy [Recovered/Resolved with Sequelae]
  - Pleural effusion [Unknown]
  - Scoliosis [Unknown]
  - Osteopenia [Unknown]
  - Arteriosclerosis [Unknown]
  - Lymphadenopathy mediastinal [Unknown]
  - Lymphadenopathy [Unknown]
